FAERS Safety Report 4864538-5 (Version None)
Quarter: 2005Q4

REPORT INFORMATION
  Report Type: 
  Country: None (occurrence: None)
  Receive Date: 20051222
  Receipt Date: 20051018
  Transmission Date: 20060501
  Serious: No
  Sender: FDA-Public Use
  Company Number: GB-ABBOTT-05P-167-0314858-00

PATIENT
  Sex: Female
  Weight: 60.382 kg

DRUGS (3)
  1. ERYTHROPED A [Suspect]
     Indication: ACNE
     Route: 048
  2. SERETIDE [Concomitant]
     Indication: ASTHMA
  3. SALBUTAMOL [Concomitant]
     Indication: ASTHMA

REACTIONS (1)
  - TOOTH DISCOLOURATION [None]
